FAERS Safety Report 8832525 (Version 1)
Quarter: 2012Q4

REPORT INFORMATION
  Report Type: 
  Country: JP (occurrence: JP)
  Receive Date: 20121010
  Receipt Date: 20121010
  Transmission Date: 20130627
  Serious: Yes (Hospitalization, Other)
  Sender: FDA-Public Use
  Company Number: JP-BAYER-2012-102372

PATIENT
  Age: 59 Year
  Sex: Female

DRUGS (5)
  1. PREDNISOLONE [Suspect]
     Indication: IMMUNOSUPPRESSANT DRUG THERAPY
     Dosage: 15 mg, QD
  2. CIPROFLOXACIN [Suspect]
     Indication: PNEUMONIA
     Dosage: 300 mg, every 12 h
  3. CIPROFLOXACIN [Suspect]
     Indication: RENAL ABSCESS
  4. TACROLIMUS [Concomitant]
     Indication: IMMUNOSUPPRESSANT DRUG THERAPY
  5. CYCLOSPORINE [Concomitant]
     Indication: MYASTHENIA GRAVIS

REACTIONS (5)
  - Nocardiosis [Recovered/Resolved]
  - Renal abscess [Recovering/Resolving]
  - Brain abscess [Recovering/Resolving]
  - Pneumonia [None]
  - Bacteraemia [Recovered/Resolved]
